FAERS Safety Report 6690764-9 (Version None)
Quarter: 2010Q2

REPORT INFORMATION
  Report Type: 
  Country: None (occurrence: None)
  Receive Date: 20100421
  Receipt Date: 20100414
  Transmission Date: 20101027
  Serious: Yes (Hospitalization, Other)
  Sender: FDA-Public Use
  Company Number: GB-PFIZER INC-2010046781

PATIENT
  Age: 64 Year
  Sex: Female
  Weight: 80 kg

DRUGS (10)
  1. LINEZOLID [Suspect]
     Indication: NEUTROPENIC SEPSIS
     Dosage: 600 MG, 2X/DAY
     Route: 042
     Dates: start: 20100401, end: 20100403
  2. AZTREONAM [Suspect]
     Indication: NEUTROPENIC SEPSIS
     Dosage: 1 G, 3X/DAY
     Route: 042
     Dates: start: 20100401, end: 20100403
  3. ACICLOVIR [Concomitant]
  4. ALLOPURINOL [Concomitant]
  5. AMPHOTERICIN B [Concomitant]
  6. MEROPENEM TRIHYDRATE [Concomitant]
  7. OMEPRAZOLE [Concomitant]
  8. PARACETAMOL [Concomitant]
  9. SIMVASTATIN [Concomitant]
  10. TEICOPLANIN [Concomitant]

REACTIONS (3)
  - BLISTER [None]
  - RASH [None]
  - RASH ERYTHEMATOUS [None]
